FAERS Safety Report 6106717-5 (Version None)
Quarter: 2009Q1

REPORT INFORMATION
  Report Type: 
  Country: None (occurrence: None)
  Receive Date: 20090305
  Receipt Date: 20090224
  Transmission Date: 20090719
  Serious: Yes (Other)
  Sender: FDA-Public Use
  Company Number: 201791

PATIENT
  Sex: Female

DRUGS (2)
  1. BLEOMYCIN SULFATE [Suspect]
     Indication: CRANIOPHARYNGIOMA
     Dosage: 17 MG,
  2. THERAPEUTIC RADIOPHARMACEUTICALS [Suspect]
     Indication: CRANIOPHARYNGIOMA
     Dosage: SEE IMAGE

REACTIONS (5)
  - INJECTION SITE EXTRAVASATION [None]
  - MENINGITIS CHEMICAL [None]
  - MOYAMOYA DISEASE [None]
  - RADIATION INJURY [None]
  - RADIATION INTERACTION [None]
